FAERS Safety Report 5442431-7 (Version None)
Quarter: 2007Q3

REPORT INFORMATION
  Report Type: 
  Country: None (occurrence: None)
  Receive Date: 20070904
  Receipt Date: 20070823
  Transmission Date: 20080115
  Serious: Yes (Other)
  Sender: FDA-Public Use
  Company Number: US-PFIZER INC-2007071250

PATIENT
  Sex: Female
  Weight: 114.3 kg

DRUGS (10)
  1. LYRICA [Suspect]
     Indication: RESTLESS LEGS SYNDROME
     Dates: start: 20070101, end: 20070601
  2. LYRICA [Suspect]
     Indication: NEURALGIA
  3. METHOTREXATE [Concomitant]
  4. FOLIC ACID [Concomitant]
  5. DARVOCET [Concomitant]
  6. ADVIL LIQUI-GELS [Concomitant]
  7. CHEMOTHERAPY NOS [Concomitant]
  8. CARDIOVASCULAR SYSTEM DRUGS [Concomitant]
  9. ANTIGLAUCOMA PREPARATIONS AND MIOTICS [Concomitant]
  10. DRUG USED IN DIABETES [Concomitant]

REACTIONS (4)
  - ACCOMMODATION DISORDER [None]
  - DISTURBANCE IN ATTENTION [None]
  - GLAUCOMA [None]
  - ROAD TRAFFIC ACCIDENT [None]
